FAERS Safety Report 6344236-1 (Version None)
Quarter: 2009Q3

REPORT INFORMATION
  Report Type: 
  Country: None (occurrence: None)
  Receive Date: 20090908
  Receipt Date: 20090827
  Transmission Date: 20100115
  Serious: Yes (Other)
  Sender: FDA-Public Use
  Company Number: TH-PFIZER INC-2009261460

PATIENT
  Age: 40 Year

DRUGS (1)
  1. SOLU-MEDROL [Suspect]
     Dosage: 30 MG/KG, SINGLE

REACTIONS (5)
  - EYE SWELLING [None]
  - HYPERSENSITIVITY [None]
  - LOCAL SWELLING [None]
  - RASH ERYTHEMATOUS [None]
  - SWELLING FACE [None]
